FAERS Safety Report 7242152-4 (Version None)
Quarter: 2011Q1

REPORT INFORMATION
  Report Type: 
  Country: None (occurrence: None)
  Receive Date: 20110124
  Receipt Date: 20051110
  Transmission Date: 20110831
  Serious: Yes (Other)
  Sender: FDA-Public Use
  Company Number: PHHY2005CL02215

PATIENT
  Age: 84 Year
  Sex: Female

DRUGS (2)
  1. NEOSINTROM [Suspect]
  2. TAREG [Suspect]

REACTIONS (1)
  - ANKLE FRACTURE [None]
